FAERS Safety Report 11054320 (Version 1)
Quarter: 2015Q2

REPORT INFORMATION
  Report Type: Spontaneous
  Country: FR (occurrence: FR)
  Receive Date: 20150422
  Receipt Date: 20150422
  Transmission Date: 20150821
  Serious: Yes (Hospitalization)
  Sender: FDA-Public Use
  Company Number: FR-SA-2015SA050215

PATIENT
  Age: 78 Year
  Sex: Male

DRUGS (17)
  1. AMLODIPINE [Concomitant]
     Active Substance: AMLODIPINE BESYLATE
  2. DAFALGAN [Suspect]
     Active Substance: ACETAMINOPHEN
     Route: 048
  3. CERIS [Suspect]
     Active Substance: TROSPIUM CHLORIDE
     Indication: URINARY INCONTINENCE
     Route: 048
     Dates: start: 20150126, end: 20150204
  4. PRIMPERAN [Suspect]
     Active Substance: METOCLOPRAMIDE HYDROCHLORIDE
     Route: 042
     Dates: start: 20150113, end: 20150116
  5. TAHOR [Suspect]
     Active Substance: ATORVASTATIN CALCIUM
     Indication: DYSLIPIDAEMIA
     Route: 048
     Dates: start: 20150115, end: 20150206
  6. PROZAC [Suspect]
     Active Substance: FLUOXETINE HYDROCHLORIDE
     Route: 048
     Dates: start: 20150116, end: 20150124
  7. GLICLAZIDE [Concomitant]
     Active Substance: GLICLAZIDE
  8. DOMPERIDONE [Concomitant]
     Active Substance: DOMPERIDONE
  9. OMEPRAZOLE. [Concomitant]
     Active Substance: OMEPRAZOLE
  10. AUGMENTIN [Suspect]
     Active Substance: AMOXICILLIN\CLAVULANATE POTASSIUM
     Indication: PNEUMONIA ASPIRATION
     Route: 042
     Dates: start: 20150112, end: 20150122
  11. MORPHINE [Suspect]
     Active Substance: MORPHINE
     Route: 058
     Dates: start: 20150202, end: 20150205
  12. MACROGOL [Concomitant]
     Active Substance: POLYETHYLENE GLYCOLS
  13. MAGNESIUM [Concomitant]
     Active Substance: MAGNESIUM
  14. ENOXAPARIN SODIUM. [Concomitant]
     Active Substance: ENOXAPARIN SODIUM
  15. ASPEGIC [Suspect]
     Active Substance: ASPIRIN DL-LYSINE
     Route: 048
     Dates: start: 20150115, end: 20150126
  16. LASILIX FAIBLE [Suspect]
     Active Substance: FUROSEMIDE
     Route: 048
     Dates: start: 20150122, end: 20150130
  17. VENLAFAXINE [Concomitant]
     Active Substance: VENLAFAXINE HYDROCHLORIDE

REACTIONS (2)
  - Cell death [Recovered/Resolved]
  - Cholestasis [Recovering/Resolving]

NARRATIVE: CASE EVENT DATE: 20150204
